FAERS Safety Report 6169858-2 (Version None)
Quarter: 2009Q2

REPORT INFORMATION
  Report Type: 
  Country: None (occurrence: None)
  Receive Date: 20090428
  Receipt Date: 20090416
  Transmission Date: 20091009
  Serious: Yes (Hospitalization)
  Sender: FDA-Public Use
  Company Number: DE-BAYER-200918583GPV

PATIENT
  Age: 52 Year
  Sex: Male

DRUGS (10)
  1. CIPROBAY [Suspect]
     Indication: DRUG USE FOR UNKNOWN INDICATION
     Route: 065
     Dates: start: 20071031
  2. RISPERDAL [Suspect]
     Indication: SCHIZOPHRENIA, PARANOID TYPE
     Dosage: UNIT DOSE: 2 MG
     Route: 065
     Dates: start: 20071023, end: 20071023
  3. RISPERDAL [Suspect]
     Route: 065
     Dates: start: 20071024, end: 20071024
  4. RISPERDAL [Suspect]
     Route: 065
     Dates: start: 20071025, end: 20071025
  5. RISPERDAL [Suspect]
     Route: 065
     Dates: start: 20071026, end: 20071026
  6. ABILIFY [Suspect]
     Indication: SCHIZOPHRENIA, PARANOID TYPE
     Route: 065
     Dates: start: 20071023, end: 20071106
  7. TAVOR [Suspect]
     Indication: SCHIZOPHRENIA, PARANOID TYPE
     Route: 065
     Dates: start: 20071023
  8. XIMOVAN [Suspect]
     Indication: DRUG USE FOR UNKNOWN INDICATION
     Route: 065
     Dates: start: 20071025
  9. AKINETON [Suspect]
     Indication: DRUG USE FOR UNKNOWN INDICATION
     Route: 065
     Dates: start: 20071030, end: 20071030
  10. UNAT COR [Suspect]
     Indication: DRUG USE FOR UNKNOWN INDICATION
     Route: 065
     Dates: start: 20071102

REACTIONS (1)
  - RHABDOMYOLYSIS [None]
